FAERS Safety Report 11769102 (Version 1)
Quarter: 2015Q4

REPORT INFORMATION
  Report Type: Spontaneous
  Country: US (occurrence: US)
  Receive Date: 20151123
  Receipt Date: 20151123
  Transmission Date: 20160304
  Serious: No
  Sender: FDA-Public Use
  Company Number: US-BAYER-2015-473848

PATIENT
  Age: 81 Year
  Sex: Female
  Weight: 47.62 kg

DRUGS (2)
  1. MIRALAX [Suspect]
     Active Substance: POLYETHYLENE GLYCOL 3350
     Indication: CONSTIPATION
     Dosage: 1 DF, QD
     Route: 048
     Dates: start: 201507
  2. NAXOPREN [Concomitant]
     Dosage: UNK

REACTIONS (2)
  - Faeces discoloured [None]
  - Product use issue [None]

NARRATIVE: CASE EVENT DATE: 201507
